FAERS Safety Report 4547901-1 (Version None)
Quarter: 2005Q1

REPORT INFORMATION
  Report Type: 
  Country: None (occurrence: None)
  Receive Date: 20050110
  Receipt Date: 20041229
  Transmission Date: 20050727
  Serious: Yes (Disabling, Other)
  Sender: FDA-Public Use
  Company Number: US-JNJFOC-20040810108

PATIENT
  Sex: Male
  Weight: 89.81 kg

DRUGS (16)
  1. REMICADE [Suspect]
     Route: 042
  2. REMICADE [Suspect]
     Route: 042
  3. REMICADE [Suspect]
     Route: 042
  4. REMICADE [Suspect]
     Route: 042
  5. REMICADE [Suspect]
     Indication: RHEUMATOID ARTHRITIS
     Route: 042
  6. PREDNISONE [Concomitant]
  7. FLEXERIL [Concomitant]
  8. PRILOSEC [Concomitant]
  9. SULFASALAZINE [Concomitant]
  10. VICODIN ES [Concomitant]
  11. VICODIN ES [Concomitant]
  12. HYDROXYCHLOROQUINE SULFATE [Concomitant]
  13. EFFEXOR [Concomitant]
  14. VIOXX [Concomitant]
  15. TRAZODONE HCL [Concomitant]
  16. METHOTREXATE [Concomitant]

REACTIONS (1)
  - RADIAL NERVE PALSY [None]
